FAERS Safety Report 16367314 (Version 1)
Quarter: 2019Q2

REPORT INFORMATION
  Report Type: Spontaneous
  Country: DE (occurrence: DE)
  Receive Date: 20190529
  Receipt Date: 20190529
  Transmission Date: 20190711
  Serious: Yes (Other)
  Sender: FDA-Public Use
  Company Number: DE-PFIZER INC-2019218107

PATIENT

DRUGS (7)
  1. PREGABALIN. [Suspect]
     Active Substance: PREGABALIN
     Dosage: 800 MG, UNK
  2. LIORESAL [Concomitant]
     Active Substance: BACLOFEN
     Dosage: UNK
  3. SEVREDOL [Suspect]
     Active Substance: MORPHINE
     Dosage: UNK
  4. SPASMEX [TROSPIUM CHLORIDE] [Concomitant]
     Dosage: UNK
  5. FORTECORTIN [DEXAMETHASONE] [Concomitant]
     Active Substance: DEXAMETHASONE
     Dosage: 4 MG, DAILY
  6. HYDROMORPHONE [HYDROMORPHONE HYDROCHLORIDE] [Suspect]
     Active Substance: HYDROMORPHONE HYDROCHLORIDE
     Dosage: 96 MG, DAILY
  7. TAVOR (LORAZEPAM) [Concomitant]
     Active Substance: LORAZEPAM
     Dosage: UNK

REACTIONS (6)
  - Overdose [Unknown]
  - Suicidal ideation [Unknown]
  - Peripheral arterial occlusive disease [Unknown]
  - Diabetic neuropathy [Unknown]
  - Pain [Unknown]
  - Neuralgia [Unknown]
